FAERS Safety Report 9071673 (Version 1)
Quarter: 2013Q1

REPORT INFORMATION
  Report Type: Spontaneous
  Country: LY (occurrence: LY)
  Receive Date: 20130129
  Receipt Date: 20130129
  Transmission Date: 20140127
  Serious: Yes (Death)
  Sender: FDA-Public Use
  Company Number: LY-ABBOTT-13P-097-1041287-00

PATIENT
  Age: 0 None
  Sex: 0

DRUGS (1)
  1. SURVANTA [Suspect]
     Indication: PREMATURE BABY
     Route: 065
     Dates: start: 20130114, end: 20130115

REACTIONS (1)
  - Pulmonary haemorrhage [Fatal]
